FAERS Safety Report 6875352-3 (Version None)
Quarter: 2010Q3

REPORT INFORMATION
  Report Type: 
  Country: None (occurrence: None)
  Receive Date: 20100727
  Receipt Date: 20080528
  Transmission Date: 20110219
  Serious: Yes (Other)
  Sender: FDA-Public Use
  Company Number: US-PFIZER INC-2006153712

PATIENT
  Sex: Male
  Weight: 70.3 kg

DRUGS (1)
  1. CELEBREX [Suspect]
     Indication: SPINAL COLUMN STENOSIS
     Dosage: 1 OR 2 DAILY
     Route: 048
     Dates: start: 19990601, end: 20020201

REACTIONS (6)
  - ASTHENIA [None]
  - CHEST PAIN [None]
  - FATIGUE [None]
  - GASTROOESOPHAGEAL REFLUX DISEASE [None]
  - HYPERTENSION [None]
  - MYOCARDIAL INFARCTION [None]
